FAERS Safety Report 24124485 (Version 2)
Quarter: 2024Q4

REPORT INFORMATION
  Report Type: Report from Study
  Country: US (occurrence: US)
  Receive Date: 20240723
  Receipt Date: 20241009
  Transmission Date: 20250114
  Serious: Yes (Hospitalization, Other)
  Sender: GILEAD
  Company Number: US-GILEAD-2024-0681353

PATIENT
  Age: 40 Year
  Sex: Female

DRUGS (41)
  1. AZTREONAM LYSINE [Suspect]
     Active Substance: AZTREONAM LYSINE
     Indication: Cystic fibrosis
     Dosage: 75 MG, TID (VIA ALTERA NEBULIZER THREE TIMES DAILY FOR 28 DAYS ON, 28 DAYS OFF)
     Route: 055
     Dates: start: 20220422
  2. AIMOVIG [Concomitant]
     Active Substance: ERENUMAB-AOOE
     Dosage: UNK
  3. AMLODIPINE [Concomitant]
     Active Substance: AMLODIPINE BESYLATE
  4. ATOVAQUONE [Concomitant]
     Active Substance: ATOVAQUONE
  5. AZATHIOPRINE [Concomitant]
     Active Substance: AZATHIOPRINE
  6. AZELASTINE [Concomitant]
     Active Substance: AZELASTINE
  7. AZITHROMYCIN [Concomitant]
     Active Substance: AZITHROMYCIN
  8. BASAGLAR [Concomitant]
     Active Substance: INSULIN GLARGINE
  9. BELSOMRA [Concomitant]
     Active Substance: SUVOREXANT
  10. CETIRIZINE [Concomitant]
     Active Substance: CETIRIZINE HYDROCHLORIDE
  11. CHLORTHALIDONE [Concomitant]
     Active Substance: CHLORTHALIDONE
  12. CONCERTA [Concomitant]
     Active Substance: METHYLPHENIDATE HYDROCHLORIDE
  13. CREON [Concomitant]
     Active Substance: PANCRELIPASE AMYLASE\PANCRELIPASE LIPASE\PANCRELIPASE PROTEASE
  14. MINERALS\VITAMINS [Concomitant]
     Active Substance: MINERALS\VITAMINS
  15. DOCUSATE SODIUM [Concomitant]
     Active Substance: DOCUSATE SODIUM
  16. ENVARSUS XR [Concomitant]
     Active Substance: TACROLIMUS
  17. ESCITALOPRAM [Concomitant]
     Active Substance: ESCITALOPRAM OXALATE
  18. GABAPENTIN [Concomitant]
     Active Substance: GABAPENTIN
  19. GAVILYTE G [Concomitant]
     Active Substance: POLYETHYLENE GLYCOL 3350\POTASSIUM CHLORIDE\SODIUM BICARBONATE\SODIUM CHLORIDE\SODIUM SULFATE
  20. HYDROXYZINE [Concomitant]
     Active Substance: HYDROXYZINE HYDROCHLORIDE
  21. LEVALBUTEROL [Concomitant]
     Active Substance: LEVALBUTEROL
  22. LIDOCAINE [Concomitant]
     Active Substance: LIDOCAINE
  23. LORAZEPAM [Concomitant]
     Active Substance: LORAZEPAM
  24. LOSARTAN [Concomitant]
     Active Substance: LOSARTAN
  25. NOVOLOG [Concomitant]
     Active Substance: INSULIN ASPART
  26. NURTEC ODT [Concomitant]
     Active Substance: RIMEGEPANT SULFATE
  27. OMEPRAZOLE [Concomitant]
     Active Substance: OMEPRAZOLE
  28. ONDANSETRON [Concomitant]
     Active Substance: ONDANSETRON
  29. OXYCODONE [Concomitant]
     Active Substance: OXYCODONE
  30. PHENAZOPYRIDINE [Concomitant]
     Active Substance: PHENAZOPYRIDINE
  31. POLYETHYLENE GLYCOLS [Concomitant]
     Active Substance: POLYETHYLENE GLYCOLS
  32. PREDNISONE [Concomitant]
     Active Substance: PREDNISONE
  33. SODIUM CHLORIDE [Concomitant]
     Active Substance: SODIUM CHLORIDE
  34. TAMSULOSIN [Concomitant]
     Active Substance: TAMSULOSIN
  35. TOBI [Concomitant]
     Active Substance: TOBRAMYCIN
  36. TRIKAFTA [Concomitant]
     Active Substance: ELEXACAFTOR\IVACAFTOR\TEZACAFTOR
  37. TROSPIUM [Concomitant]
     Active Substance: TROSPIUM
  38. URSODIOL [Concomitant]
     Active Substance: URSODIOL
  39. WELLBUTRIN [Concomitant]
     Active Substance: BUPROPION HYDROCHLORIDE
  40. ZOLPIDEM [Concomitant]
     Active Substance: ZOLPIDEM TARTRATE
  41. CORTISONE [Concomitant]
     Active Substance: CORTISONE

REACTIONS (7)
  - Nephrolithiasis [Unknown]
  - Flatulence [Unknown]
  - Dyspepsia [Unknown]
  - Constipation [Unknown]
  - Renal colic [Unknown]
  - Fatigue [Unknown]
  - Dyspnoea [Unknown]

NARRATIVE: CASE EVENT DATE: 20240701
